FAERS Safety Report 23226597 (Version 1)
Quarter: 2023Q4

REPORT INFORMATION
  Report Type: Spontaneous
  Country: CA (occurrence: CA)
  Receive Date: 20231124
  Receipt Date: 20231124
  Transmission Date: 20240109
  Serious: Yes (Hospitalization, Other)
  Sender: FDA-Public Use
  Company Number: CA-LUNDBECK-DKLU3070524

PATIENT
  Age: 43 Year
  Sex: Female
  Weight: 63 kg

DRUGS (16)
  1. CITALOPRAM [Suspect]
     Active Substance: CITALOPRAM HYDROBROMIDE
     Indication: Depression
     Dosage: 20 MG DIE
     Route: 048
  2. GLICLAZIDE [Concomitant]
     Active Substance: GLICLAZIDE
     Indication: Product used for unknown indication
  3. METFORMIN [Concomitant]
     Active Substance: METFORMIN HYDROCHLORIDE
     Indication: Diabetes mellitus
     Route: 048
  4. MIRTAZAPINE [Concomitant]
     Active Substance: MIRTAZAPINE
     Indication: Depression
     Route: 065
     Dates: start: 2020
  5. JARDIANCE [Concomitant]
     Active Substance: EMPAGLIFLOZIN
     Indication: Diabetes mellitus
     Route: 048
  6. SOMAVERT [Suspect]
     Active Substance: PEGVISOMANT
     Indication: Insulin-like growth factor increased
     Dosage: 1X/DAY HOLD
     Route: 058
     Dates: start: 20190802
  7. SOMAVERT [Suspect]
     Active Substance: PEGVISOMANT
     Indication: Insulin-like growth factor increased
     Dosage: 10 MG DAILY (DISCONTINUED 2020/2021)
     Route: 058
     Dates: start: 2019
  8. SOMAVERT [Suspect]
     Active Substance: PEGVISOMANT
     Indication: Insulin-like growth factor increased
     Route: 058
     Dates: start: 20190802, end: 20190807
  9. SOMAVERT [Suspect]
     Active Substance: PEGVISOMANT
     Indication: Insulin-like growth factor increased
     Route: 058
     Dates: start: 2019, end: 2019
  10. SOMAVERT [Suspect]
     Active Substance: PEGVISOMANT
     Indication: Insulin-like growth factor increased
     Dosage: UNKNOWN
     Route: 065
  11. SOMAVERT [Suspect]
     Active Substance: PEGVISOMANT
     Indication: Insulin-like growth factor increased
     Route: 058
  12. SOMAVERT [Suspect]
     Active Substance: PEGVISOMANT
     Indication: Insulin-like growth factor increased
     Dosage: 1X/DAY
     Route: 058
     Dates: start: 20210211
  13. SOMAVERT [Suspect]
     Active Substance: PEGVISOMANT
     Indication: Insulin-like growth factor increased
     Dosage: 1X/DAY HOLD
     Route: 058
     Dates: start: 20220406, end: 20220428
  14. SOMAVERT [Suspect]
     Active Substance: PEGVISOMANT
     Indication: Insulin-like growth factor increased
     Dosage: 1X/DAY
     Route: 058
     Dates: start: 2022
  15. CANDESARTAN [Concomitant]
     Active Substance: CANDESARTAN
     Indication: Renal disorder
  16. JARDIANCE [Concomitant]
     Active Substance: EMPAGLIFLOZIN
     Indication: Diabetes mellitus

REACTIONS (25)
  - Mental disorder [Not Recovered/Not Resolved]
  - Cough [Recovered/Resolved]
  - Central obesity [Unknown]
  - Weight increased [Unknown]
  - Rash [Not Recovered/Not Resolved]
  - Diabetes mellitus [Not Recovered/Not Resolved]
  - Asthenia [Recovered/Resolved]
  - Amnesia [Not Recovered/Not Resolved]
  - Blood growth hormone increased [Unknown]
  - Urticaria [Unknown]
  - Blood glucose abnormal [Not Recovered/Not Resolved]
  - Loss of personal independence in daily activities [Unknown]
  - Affective disorder [Unknown]
  - Depression [Unknown]
  - Headache [Unknown]
  - Renal disorder [Unknown]
  - Nasopharyngitis [Unknown]
  - Suicidal ideation [Unknown]
  - Hypertension [Unknown]
  - Eating disorder [Unknown]
  - Neck pain [Unknown]
  - Insulin-like growth factor increased [Unknown]
  - Frustration tolerance decreased [Unknown]
  - Malaise [Unknown]
  - Fatigue [Not Recovered/Not Resolved]

NARRATIVE: CASE EVENT DATE: 20190801
